FAERS Safety Report 18850624 (Version 2)
Quarter: 2021Q1

REPORT INFORMATION
  Report Type: Spontaneous
  Country: GR (occurrence: GR)
  Receive Date: 20210205
  Receipt Date: 20210217
  Transmission Date: 20210420
  Serious: Yes (Death, Hospitalization)
  Sender: FDA-Public Use
  Company Number: GR-HTU-2021GR021671

PATIENT
  Age: 72 Year
  Sex: Male

DRUGS (1)
  1. MECHLORETHAMINE HYDROCHLORIDE [Suspect]
     Active Substance: MECHLORETHAMINE HYDROCHLORIDE
     Indication: CUTANEOUS T-CELL LYMPHOMA STAGE II
     Dosage: UNK, QD
     Route: 061
     Dates: start: 201908, end: 201909

REACTIONS (4)
  - Pathogen resistance [Fatal]
  - Pyrexia [Fatal]
  - Dyspnoea [Fatal]
  - Respiratory tract infection [Fatal]

NARRATIVE: CASE EVENT DATE: 201912
